FAERS Safety Report 4551302-X (Version None)
Quarter: 2005Q1

REPORT INFORMATION
  Report Type: 
  Country: None (occurrence: None)
  Receive Date: 20050110
  Receipt Date: 20041227
  Transmission Date: 20050727
  Serious: Yes (Death, Hospitalization, Other)
  Sender: FDA-Public Use
  Company Number: 15921

PATIENT
  Age: 64 Year
  Sex: Male
  Weight: 84.8226 kg

DRUGS (1)
  1. DAUNORUBICIN HCL [Suspect]
     Indication: ACUTE MYELOID LEUKAEMIA
     Dosage: 240 MG/M2
     Dates: start: 20041120

REACTIONS (3)
  - FEBRILE NEUTROPENIA [None]
  - PNEUMONITIS [None]
  - SEPTIC SHOCK [None]
